FAERS Safety Report 11096144 (Version 1)
Quarter: 2015Q2

REPORT INFORMATION
  Report Type: Spontaneous
  Country: US (occurrence: None)
  Receive Date: 20150506
  Receipt Date: 20150506
  Transmission Date: 20150821
  Serious: No
  Sender: FDA-Public Use
  Company Number: None

PATIENT
  Age: 60 Year
  Sex: Female
  Weight: 85.28 kg

DRUGS (6)
  1. METOPROLOL XL [Suspect]
     Active Substance: METOPROLOL
     Route: 048
  2. FEXOFENEDINE [Concomitant]
  3. CALCIUM [Concomitant]
     Active Substance: CALCIUM
  4. TOPRAL [Concomitant]
     Active Substance: SULTOPRIDE HYDROCHLORIDE
  5. TYLENOL [Concomitant]
     Active Substance: ACETAMINOPHEN
  6. VITAMIN D [Concomitant]
     Active Substance: CHOLECALCIFEROL

REACTIONS (4)
  - Product substitution issue [None]
  - Feeling jittery [None]
  - Dizziness [None]
  - Insomnia [None]
